FAERS Safety Report 5963956-1 (Version None)
Quarter: 2008Q4

REPORT INFORMATION
  Report Type: 
  Country: None (occurrence: None)
  Receive Date: 20081120
  Receipt Date: 20081112
  Transmission Date: 20090506
  Serious: Yes (Other)
  Sender: FDA-Public Use
  Company Number: 230077K08BRA

PATIENT
  Sex: Female

DRUGS (11)
  1. REBIF [Suspect]
     Dosage: 44 MCG, 3 IN 1 WEEKS
     Dates: start: 20050822
  2. PROPRANOLOL [Concomitant]
  3. CAPTOPRIL [Concomitant]
  4. FUROSEMIDE [Concomitant]
  5. CARBAMAZEPINE [Concomitant]
  6. AMITRIPTYLINE HYDROCHLORIDE [Concomitant]
  7. SOMALGIN (BUFFERIN /00009201/) [Concomitant]
  8. LIORESAL [Concomitant]
  9. CORTICORTEN (PREDNISONE/00044701/) [Concomitant]
  10. NIMESULIDE (NIMESULIDE) [Concomitant]
  11. SEDILIX (PHENSEDYL  /00093001/) [Concomitant]

REACTIONS (3)
  - CARDIAC VENTRICULAR DISORDER [None]
  - ISCHAEMIA [None]
  - VASCULAR GRAFT [None]
